FAERS Safety Report 5011625-7 (Version None)
Quarter: 2006Q2

REPORT INFORMATION
  Report Type: 
  Country: None (occurrence: None)
  Receive Date: 20060526
  Receipt Date: 20060516
  Transmission Date: 20061013
  Serious: Yes (Hospitalization)
  Sender: FDA-Public Use
  Company Number: FR-JNJFOC-20060503551

PATIENT
  Age: 24 Year
  Sex: Female
  Weight: 55 kg

DRUGS (4)
  1. REMICADE [Suspect]
     Indication: CROHN'S DISEASE
     Route: 042
  2. AZATHIOPRINE [Concomitant]
     Indication: CROHN'S DISEASE
     Route: 048
  3. ORAL CONTRACEPTIVE NOS [Concomitant]
     Indication: CONTRACEPTION
     Route: 048
  4. METHOTREXATE [Concomitant]
     Indication: CROHN'S DISEASE
     Route: 048

REACTIONS (5)
  - HEADACHE [None]
  - HEMIPARESIS [None]
  - INFLUENZA LIKE ILLNESS [None]
  - PNEUMONIA MYCOPLASMAL [None]
  - PURPURA [None]
